FAERS Safety Report 8247486-2 (Version None)
Quarter: 2012Q1

REPORT INFORMATION
  Report Type: 
  Country: None (occurrence: None)
  Receive Date: 20120327
  Receipt Date: 20120312
  Transmission Date: 20120608
  Serious: Yes (Hospitalization)
  Sender: FDA-Public Use
  Company Number: E2B_00000171

PATIENT
  Age: 62 Year
  Sex: Female

DRUGS (2)
  1. SERTRALINE HYDROCHLORIDE [Suspect]
     Indication: PRODUCT USED FOR UNKNOWN INDICATION
     Dosage: (25 MG,),ORAL
     Route: 048
  2. ZOPICLONE (ZOPICLON)(UNKNOWN) [Concomitant]

REACTIONS (3)
  - NERVOUS SYSTEM DISORDER [None]
  - TORTICOLLIS [None]
  - CONDITION AGGRAVATED [None]
